FAERS Safety Report 4769806-3 (Version None)
Quarter: 2005Q3

REPORT INFORMATION
  Report Type: 
  Country: None (occurrence: None)
  Receive Date: 20050907
  Receipt Date: 20050725
  Transmission Date: 20060218
  Serious: Yes (Other)
  Sender: FDA-Public Use
  Company Number: HQWYE592729JUL05

PATIENT
  Age: 6 Year
  Sex: Male
  Weight: 22.7 kg

DRUGS (1)
  1. DIMETAPP TAB [Suspect]
     Indication: ALLERGY TO ANIMAL
     Dosage: 1 TABLET 1X PER DAY, ORAL
     Route: 048
     Dates: start: 20050720, end: 20050724

REACTIONS (3)
  - ABNORMAL BEHAVIOUR [None]
  - IRRITABILITY [None]
  - PSYCHOMOTOR HYPERACTIVITY [None]
